FAERS Safety Report 20863378 (Version 4)
Quarter: 2022Q3

REPORT INFORMATION
  Report Type: Spontaneous
  Country: SK (occurrence: SK)
  Receive Date: 20220523
  Receipt Date: 20220706
  Transmission Date: 20221026
  Serious: Yes (Death, Hospitalization, Other)
  Sender: FDA-Public Use
  Company Number: SK-PFIZER INC-202200724707

PATIENT
  Age: 49 Year
  Sex: Female

DRUGS (2)
  1. LORLATINIB [Suspect]
     Active Substance: LORLATINIB
     Indication: Non-small cell lung cancer
     Dosage: 100 MG
     Dates: start: 20211115, end: 20220210
  2. LORLATINIB [Suspect]
     Active Substance: LORLATINIB
     Dosage: 100 MG ALTERNATE DAY (EVERY OTHER DAY)
     Dates: start: 20220224

REACTIONS (12)
  - Multiple organ dysfunction syndrome [Fatal]
  - Condition aggravated [Unknown]
  - Dyspnoea [Unknown]
  - Body temperature increased [Unknown]
  - Chest pain [Unknown]
  - Blood cholesterol increased [Unknown]
  - Full blood count abnormal [Unknown]
  - Hepatic enzyme abnormal [Not Recovered/Not Resolved]
  - Blood triglycerides increased [Not Recovered/Not Resolved]
  - Blood bilirubin increased [Not Recovered/Not Resolved]
  - Neoplasm progression [Unknown]
  - Blood creatinine increased [Unknown]

NARRATIVE: CASE EVENT DATE: 20220111
